FAERS Safety Report 22352379 (Version 1)
Quarter: 2023Q2

REPORT INFORMATION
  Report Type: Spontaneous
  Country: US (occurrence: None)
  Receive Date: 20230522
  Receipt Date: 20230522
  Transmission Date: 20230721
  Serious: Yes (Other)
  Sender: FDA-Public Use
  Company Number: US-FARMAPROD-202305-1364

PATIENT
  Sex: Female

DRUGS (13)
  1. OXERVATE [Suspect]
     Active Substance: CENEGERMIN-BKBJ
     Indication: Neurotrophic keratopathy
     Route: 047
     Dates: start: 20230410
  2. OXERVATE [Suspect]
     Active Substance: CENEGERMIN-BKBJ
     Indication: Ulcerative keratitis
  3. ONDANSETRON HYDROCHLORIDE [Concomitant]
     Active Substance: ONDANSETRON HYDROCHLORIDE
  4. RHOPRESSA [Concomitant]
     Active Substance: NETARSUDIL MESYLATE
  5. MOXIFLOXACIN [Concomitant]
     Active Substance: MOXIFLOXACIN
  6. BRIMONIDINE TARTRATE/TIMOLOL [Concomitant]
  7. LATANOPROST [Concomitant]
     Active Substance: LATANOPROST
  8. FLUOROMETHOLONE [Concomitant]
     Active Substance: FLUOROMETHOLONE
  9. VALACYCLOVIR [Concomitant]
     Active Substance: VALACYCLOVIR HYDROCHLORIDE
  10. FAMOTIDINE [Concomitant]
     Active Substance: FAMOTIDINE
  11. LEVO-T [Concomitant]
     Active Substance: LEVOTHYROXINE SODIUM
  12. NOVOLOG [Concomitant]
     Active Substance: INSULIN ASPART
  13. LANTUS [Concomitant]
     Active Substance: INSULIN GLARGINE
     Dosage: VIAL.

REACTIONS (1)
  - Pneumonia [Unknown]
